FAERS Safety Report 25899599 (Version 1)
Quarter: 2025Q4

REPORT INFORMATION
  Report Type: Spontaneous
  Country: CN (occurrence: CN)
  Receive Date: 20251009
  Receipt Date: 20251009
  Transmission Date: 20260117
  Serious: Yes (Other)
  Sender: ROCHE
  Company Number: CN-ROCHE-10000398719

PATIENT
  Age: 2 Year
  Sex: Female

DRUGS (3)
  1. BALOXAVIR MARBOXIL [Suspect]
     Active Substance: BALOXAVIR MARBOXIL
     Indication: Influenza
     Route: 048
     Dates: start: 20250913, end: 20250913
  2. IBUPROFEN [Suspect]
     Active Substance: IBUPROFEN
     Indication: Hyperpyrexia
     Route: 048
     Dates: start: 20250913, end: 20250919
  3. IBUPROFEN [Suspect]
     Active Substance: IBUPROFEN
     Indication: Influenza

REACTIONS (6)
  - Agranulocytosis [Recovering/Resolving]
  - Lymphocyte count decreased [Recovering/Resolving]
  - Platelet count decreased [Recovering/Resolving]
  - Asthenia [Unknown]
  - Decreased appetite [Unknown]
  - White blood cell count decreased [Recovered/Resolved]

NARRATIVE: CASE EVENT DATE: 20250918
